FAERS Safety Report 16970035 (Version 1)
Quarter: 2019Q4

REPORT INFORMATION
  Report Type: Report from Study
  Country: US (occurrence: US)
  Receive Date: 20191029
  Receipt Date: 20191029
  Transmission Date: 20200122
  Serious: Yes (Hospitalization)
  Sender: FDA-Public Use
  Company Number: US-IPSEN BIOPHARMACEUTICALS, INC.-2019-19507

PATIENT
  Age: 61 Year
  Sex: Female
  Weight: 86.2 kg

DRUGS (4)
  1. 5-FU [Suspect]
     Active Substance: FLUOROURACIL
     Indication: CHOLANGIOCARCINOMA
     Dosage: IV OVER 46 HOURS, Q14 DAYS
     Route: 042
     Dates: start: 20190614
  2. ONIVYDE [Suspect]
     Active Substance: IRINOTECAN HYDROCHLORIDE
     Indication: CHOLANGIOCARCINOMA
     Dosage: IV OVER 90 MINS, Q14 DAYS
     Route: 042
     Dates: start: 20190614
  3. LEUCOVORIN. [Suspect]
     Active Substance: LEUCOVORIN
     Indication: CHOLANGIOCARCINOMA
     Dosage: IV OVER 90 MINS, Q14 DAYS
     Route: 042
     Dates: start: 20190614
  4. NIVOLUMAB [Suspect]
     Active Substance: NIVOLUMAB
     Indication: CHOLANGIOCARCINOMA
     Dosage: IV OVER 30 MINS,Q14 DAYS
     Route: 042
     Dates: start: 20190614

REACTIONS (1)
  - Colitis [Not Recovered/Not Resolved]

NARRATIVE: CASE EVENT DATE: 20191022
